FAERS Safety Report 18936074 (Version 4)
Quarter: 2021Q2

REPORT INFORMATION
  Report Type: Spontaneous
  Country: US (occurrence: US)
  Receive Date: 20210225
  Receipt Date: 20210520
  Transmission Date: 20210717
  Serious: Yes (Other)
  Sender: FDA-Public Use
  Company Number: US-GLAXOSMITHKLINE-US2021AMR045311

PATIENT
  Age: 61 Year
  Sex: Male

DRUGS (7)
  1. FLOLAN [Suspect]
     Active Substance: EPOPROSTENOL SODIUM
     Dosage: 13 NG/KG, Z (PER MINUTE)
  2. REVLIMID [Concomitant]
     Active Substance: LENALIDOMIDE
     Indication: NEUROPATHY PERIPHERAL
  3. REVLIMID [Concomitant]
     Active Substance: LENALIDOMIDE
     Indication: PLASMA CELL MYELOMA
     Dosage: UNK UNK, BID
     Route: 048
     Dates: start: 20210114
  4. FLOLAN [Suspect]
     Active Substance: EPOPROSTENOL SODIUM
     Indication: PULMONARY ARTERIAL HYPERTENSION
     Dosage: 11 NG/KG, Z (PER MINUTE)
     Dates: start: 20210212
  5. FLOLAN [Suspect]
     Active Substance: EPOPROSTENOL SODIUM
     Dosage: 14 NG/KG, Z (PER MINUTE)
  6. FLOLAN DILUENT PH 12 [Suspect]
     Active Substance: GLYCINE\MANNITOL\SODIUM CHLORIDE
     Indication: PULMONARY ARTERIAL HYPERTENSION
     Dosage: UNK
     Dates: start: 20210212, end: 20210330
  7. VELETRI [Suspect]
     Active Substance: EPOPROSTENOL
     Indication: PULMONARY ARTERIAL HYPERTENSION
     Dosage: 16NG/KG/MIN
     Route: 042
     Dates: start: 20210330

REACTIONS (7)
  - Influenza like illness [Recovered/Resolved]
  - Vision blurred [Not Recovered/Not Resolved]
  - Neuropathy peripheral [Recovering/Resolving]
  - Flushing [Recovered/Resolved]
  - Drug titration error [Unknown]
  - Epistaxis [Recovered/Resolved]
  - Pain in extremity [Recovering/Resolving]

NARRATIVE: CASE EVENT DATE: 20210213
